FAERS Safety Report 4602594-X (Version None)
Quarter: 2005Q1

REPORT INFORMATION
  Report Type: 
  Country: None (occurrence: None)
  Receive Date: 20050309
  Receipt Date: 20050228
  Transmission Date: 20050727
  Serious: Yes (Hospitalization)
  Sender: FDA-Public Use
  Company Number: PHFR2005GB01056

PATIENT
  Age: 74 Year
  Sex: Female

DRUGS (12)
  1. DICLOFENAC [Suspect]
     Dosage: 75MG/DAY
     Route: 042
     Dates: start: 20050208, end: 20050208
  2. LEVOBUPIVACAINE [Suspect]
     Dosage: 20ML/DAY
     Route: 058
     Dates: start: 20050208
  3. KELP [Concomitant]
     Indication: HYPOTHYROIDISM
     Route: 048
  4. GLUCOSAMINE [Concomitant]
     Indication: ARTHRITIS
     Route: 048
  5. CEFTRIAXONE [Concomitant]
     Indication: SEPSIS
     Route: 042
  6. METRONIDAZOLE [Concomitant]
     Dosage: 500MG/DAY
     Route: 042
     Dates: start: 20050208
  7. PROPOFOL [Concomitant]
     Route: 042
     Dates: start: 20050208
  8. FENTANYL CITRATE [Concomitant]
     Dosage: 50UG/DAY
     Route: 042
     Dates: start: 20050208
  9. SUCCINYLCHOLINE CHLORIDE [Concomitant]
     Route: 042
     Dates: start: 20050208
  10. MORPHINE [Concomitant]
     Dosage: 6+4MG
     Dates: start: 20050208
  11. ROCURONIUM BROMIDE [Concomitant]
     Dosage: 30 + 20 MG
     Route: 042
     Dates: start: 20050208
  12. CEFUROXIME [Concomitant]
     Dosage: 1.5G/DAY
     Route: 042
     Dates: start: 20050208

REACTIONS (5)
  - CARDIAC OUTPUT DECREASED [None]
  - HYPOTENSION [None]
  - OXYGEN SATURATION DECREASED [None]
  - PCO2 DECREASED [None]
  - RASH ERYTHEMATOUS [None]
